FAERS Safety Report 8109157-2 (Version None)
Quarter: 2012Q1

REPORT INFORMATION
  Report Type: 
  Country: None (occurrence: None)
  Receive Date: 20120202
  Receipt Date: 20120131
  Transmission Date: 20120608
  Serious: No
  Sender: FDA-Public Use
  Company Number: US-TEVA-320672USA

PATIENT
  Sex: Female
  Weight: 49.94 kg

DRUGS (3)
  1. PLAN B ONE-STEP [Suspect]
     Indication: POST COITAL CONTRACEPTION
     Dosage: 1.5 MILLIGRAM;
     Route: 048
     Dates: start: 20120130, end: 20120130
  2. LUTERA [Concomitant]
     Indication: CONTRACEPTION
     Route: 048
  3. PLAN B ONE-STEP [Suspect]
     Dosage: 1.5 MILLIGRAM;
     Route: 048
     Dates: start: 20120130, end: 20120130

REACTIONS (4)
  - HYPERHIDROSIS [None]
  - ABDOMINAL DISCOMFORT [None]
  - INTENTIONAL OVERDOSE [None]
  - DIZZINESS [None]
